FAERS Safety Report 9201728 (Version 1)
Quarter: 2013Q1

REPORT INFORMATION
  Report Type: Spontaneous
  Country: AU (occurrence: None)
  Receive Date: 20130327
  Receipt Date: 20130327
  Transmission Date: 20140127
  Serious: Yes (Other)
  Sender: FDA-Public Use
  Company Number: 2013000053

PATIENT
  Age: 62 Year
  Sex: Female
  Weight: 106 kg

DRUGS (1)
  1. ACEON (PERINDOPRIL ERBUMINE) TABLET, 2MG [Suspect]
     Indication: HYPERTENSION
     Route: 048
     Dates: start: 19961102, end: 19961110

REACTIONS (2)
  - Bronchospasm [None]
  - Dyspnoea [None]
